FAERS Safety Report 6159709-4 (Version None)
Quarter: 2009Q2

REPORT INFORMATION
  Report Type: 
  Country: None (occurrence: None)
  Receive Date: 20090420
  Receipt Date: 20090407
  Transmission Date: 20091009
  Serious: Yes (Other)
  Sender: FDA-Public Use
  Company Number: FR-B.I. PHARMACEUTICALS,INC./RIDGEFIELD-2009-FF-00276FF

PATIENT
  Sex: Male

DRUGS (4)
  1. VIRAMUNE [Suspect]
  2. DEPAKENE [Suspect]
  3. COMBIVIR [Concomitant]
  4. NEURONTIN [Concomitant]

REACTIONS (1)
  - CONVULSION [None]
